FAERS Safety Report 14711325 (Version 1)
Quarter: 2018Q2

REPORT INFORMATION
  Report Type: Spontaneous
  Country: US (occurrence: US)
  Receive Date: 20180403
  Receipt Date: 20180403
  Transmission Date: 20180711
  Serious: No
  Sender: FDA-Public Use
  Company Number: US-ANTARES PHARMA, INC.-2018-SPO-SU-0354

PATIENT
  Age: 49 Year
  Sex: Female

DRUGS (1)
  1. SUMATRIPTAN. [Suspect]
     Active Substance: SUMATRIPTAN
     Indication: MIGRAINE
     Dosage: 6 MG/0.5ML, PRN
     Route: 058

REACTIONS (5)
  - Device deployment issue [Unknown]
  - Drug dose omission [Unknown]
  - Needle issue [Unknown]
  - Device deployment issue [Unknown]
  - Device issue [Unknown]

NARRATIVE: CASE EVENT DATE: 20180128
